FAERS Safety Report 6115426-8 (Version None)
Quarter: 2009Q1

REPORT INFORMATION
  Report Type: 
  Country: None (occurrence: None)
  Receive Date: 20090313
  Receipt Date: 20090303
  Transmission Date: 20090719
  Serious: Yes (Death)
  Sender: FDA-Public Use
  Company Number: US-PFIZER INC-2009177602

PATIENT
  Age: 18 Year
  Sex: Female

DRUGS (7)
  1. XANAX [Suspect]
  2. ZOLOFT [Suspect]
  3. TRAMADOL HCL [Suspect]
  4. UNISOM [Suspect]
  5. FLEXERIL [Suspect]
  6. KLONOPIN [Suspect]
  7. ULTRAM [Suspect]

REACTIONS (2)
  - DRUG INTERACTION [None]
  - DRUG TOXICITY [None]
